FAERS Safety Report 7742726-8 (Version None)
Quarter: 2011Q3

REPORT INFORMATION
  Report Type: 
  Country: None (occurrence: None)
  Receive Date: 20110906
  Receipt Date: 20110901
  Transmission Date: 20111222
  Serious: Yes (Life-Threatening, Hospitalization)
  Sender: FDA-Public Use
  Company Number: 2011SP015320

PATIENT
  Age: 85 Year
  Sex: Male

DRUGS (10)
  1. ZOCOR [Concomitant]
  2. AVODART [Concomitant]
  3. ACETAMINOPHEN [Concomitant]
  4. SINTROM [Suspect]
     Indication: ANTICOAGULANT THERAPY
     Dosage: 2 MG;QD;PO
     Route: 048
     Dates: end: 20110301
  5. ACETAMINOPHEN AND TRAMADOL HCL [Concomitant]
  6. ORGARAN [Suspect]
     Indication: ANTICOAGULANT THERAPY
     Dosage: SC; 2000 IU; BID; SC
     Route: 058
     Dates: start: 20110304
  7. ORGARAN [Suspect]
     Indication: ANTICOAGULANT THERAPY
     Dosage: SC; 2000 IU; BID; SC
     Route: 058
     Dates: start: 20100225, end: 20110301
  8. FORLAX [Concomitant]
  9. VALSARTAN [Concomitant]
  10. VESICARE [Concomitant]

REACTIONS (14)
  - RETROPERITONEAL HAEMORRHAGE [None]
  - ATRIAL FIBRILLATION [None]
  - RENAL FAILURE ACUTE [None]
  - HAEMODYNAMIC INSTABILITY [None]
  - CARDIAC FAILURE [None]
  - DRUG INTERACTION [None]
  - MUSCLE HAEMORRHAGE [None]
  - PYELOCALIECTASIS [None]
  - HYPERKALAEMIA [None]
  - NERVE COMPRESSION [None]
  - COGNITIVE DISORDER [None]
  - MALNUTRITION [None]
  - MONOPLEGIA [None]
  - ANAEMIA [None]
